FAERS Safety Report 11641348 (Version 1)
Quarter: 2015Q4

REPORT INFORMATION
  Report Type: Spontaneous
  Country: US (occurrence: US)
  Receive Date: 20151019
  Receipt Date: 20151019
  Transmission Date: 20160304
  Serious: Yes (Death, Hospitalization)
  Sender: FDA-Public Use
  Company Number: US-BD RX INC-2015BDR00623

PATIENT
  Age: 63 Year
  Sex: Male

DRUGS (3)
  1. AMIODARONE [Concomitant]
     Active Substance: AMIODARONE
  2. DEXAMETHASONE SODIUM PHOSPHATE. [Suspect]
     Active Substance: DEXAMETHASONE SODIUM PHOSPHATE
     Dosage: 0.75 MG, 1X/DAY
  3. DEXAMETHASONE SODIUM PHOSPHATE. [Suspect]
     Active Substance: DEXAMETHASONE SODIUM PHOSPHATE
     Indication: THYROIDITIS
     Dosage: 6 MG GRADUALLY TAPERED, UNK

REACTIONS (13)
  - Cardiac failure [Fatal]
  - Metabolic acidosis [None]
  - Pneumocystis jirovecii pneumonia [Fatal]
  - Respiratory acidosis [None]
  - Pulmonary toxicity [None]
  - Embolism venous [None]
  - Renal replacement therapy [None]
  - Septic shock [Fatal]
  - Cardio-respiratory arrest [Fatal]
  - Lactic acidosis [None]
  - Respiratory alkalosis [None]
  - Adrenal insufficiency [None]
  - Acute kidney injury [Fatal]
